FAERS Safety Report 7358507-3 (Version None)
Quarter: 2011Q1

REPORT INFORMATION
  Report Type: 
  Country: None (occurrence: None)
  Receive Date: 20110317
  Receipt Date: 20110308
  Transmission Date: 20110831
  Serious: Yes (Death, Hospitalization, Other)
  Sender: FDA-Public Use
  Company Number: US-AMGEN-USASP2011013032

PATIENT
  Age: 46 Year
  Sex: Female

DRUGS (1)
  1. EPOGEN [Suspect]
     Indication: DIALYSIS
     Dosage: 5600 IU, 3 TIMES/WK
     Route: 042

REACTIONS (8)
  - DEATH [None]
  - HEPATIC CIRRHOSIS [None]
  - GRAFT INFECTION [None]
  - PAIN [None]
  - HOSPITALISATION [None]
  - CELLULITIS [None]
  - REFUSAL OF TREATMENT BY PATIENT [None]
  - STAPHYLOCOCCAL INFECTION [None]
